FAERS Safety Report 5631083-9 (Version None)
Quarter: 2008Q1

REPORT INFORMATION
  Report Type: 
  Country: None (occurrence: None)
  Receive Date: 20080131
  Receipt Date: 20071119
  Transmission Date: 20080703
  Serious: No
  Sender: FDA-Public Use
  Company Number: 163-21880-07111121

PATIENT
  Age: 71 Year
  Sex: Female
  Weight: 81.6475 kg

DRUGS (9)
  1. REVLIMID [Suspect]
     Indication: MYELODYSPLASTIC SYNDROME
     Dosage: 10 MG, 1 IN 1 D, ORAL
     Route: 048
     Dates: start: 20071018
  2. SYNTHROID [Concomitant]
  3. ANZEMET [Concomitant]
  4. BENTYL [Concomitant]
  5. FLAGYL [Concomitant]
  6. LASIX [Concomitant]
  7. LEXAPRO [Concomitant]
  8. ZOFRAN [Concomitant]
  9. NEXIUM [Concomitant]

REACTIONS (1)
  - FATIGUE [None]
